FAERS Safety Report 18230669 (Version 1)
Quarter: 2020Q3

REPORT INFORMATION
  Report Type: Spontaneous
  Country: US (occurrence: US)
  Receive Date: 20200904
  Receipt Date: 20200904
  Transmission Date: 20201103
  Serious: Yes (Other)
  Sender: FDA-Public Use
  Company Number: US-AMGEN-USASP2020139575

PATIENT
  Age: 67 Year
  Sex: Female

DRUGS (4)
  1. PROLIA [Suspect]
     Active Substance: DENOSUMAB
     Indication: OSTEOPOROSIS
     Dosage: UNK
     Route: 065
  2. CALCIUM [Concomitant]
     Active Substance: CALCIUM
     Dosage: 1200 UNK, QD
  3. VIT D [Concomitant]
     Active Substance: VITAMIN D NOS
     Dosage: 50000 UNK, QD
  4. FORTEO [Concomitant]
     Active Substance: TERIPARATIDE

REACTIONS (3)
  - Knee arthroplasty [Unknown]
  - Tooth loss [Unknown]
  - Drug ineffective [Unknown]
